FAERS Safety Report 8868088 (Version 1)
Quarter: 2012Q4

REPORT INFORMATION
  Report Type: 
  Country: US (occurrence: US)
  Receive Date: 20121025
  Receipt Date: 20121025
  Transmission Date: 20130627
  Serious: No
  Sender: FDA-Public Use
  Company Number: US-AMGEN-USASP2012019352

PATIENT
  Age: 79 Year
  Sex: Female

DRUGS (9)
  1. ENBREL [Suspect]
     Indication: RHEUMATOID ARTHRITIS
     Dosage: 50 mg, qwk
     Dates: start: 201203
  2. LIPITOR [Concomitant]
     Dosage: UNK
  3. ACIPHEX [Concomitant]
  4. LISINOPRIL [Concomitant]
     Dosage: UNK
  5. METHOTREXATE [Concomitant]
     Dosage: UNK
  6. FOLIC ACID [Concomitant]
     Dosage: UNK
  7. CENTRUM                            /00554501/ [Concomitant]
     Dosage: UNK
  8. CALTRATE D                         /00944201/ [Concomitant]
  9. LEVOBUNOLOL [Concomitant]
     Dosage: UNK

REACTIONS (2)
  - Blood glucose decreased [Unknown]
  - Confusional state [Unknown]
